FAERS Safety Report 5195804-4 (Version None)
Quarter: 2007Q1

REPORT INFORMATION
  Report Type: 
  Country: None (occurrence: None)
  Receive Date: 20070102
  Receipt Date: 20061220
  Transmission Date: 20070707
  Serious: Yes (Other)
  Sender: FDA-Public Use
  Company Number: GB-AMGEN-UK205034

PATIENT
  Sex: Male

DRUGS (2)
  1. ARANESP [Suspect]
     Indication: DIALYSIS
     Route: 058
     Dates: start: 20021104, end: 20050913
  2. EPREX [Concomitant]
     Route: 042
     Dates: start: 20040319, end: 20040604

REACTIONS (4)
  - CATHETER RELATED INFECTION [None]
  - HAEMOGLOBIN DECREASED [None]
  - RETICULOCYTE COUNT DECREASED [None]
  - STAPHYLOCOCCAL SEPSIS [None]
